FAERS Safety Report 9563549 (Version 1)
Quarter: 2013Q3

REPORT INFORMATION
  Report Type: Spontaneous
  Country: US (occurrence: None)
  Receive Date: 20130926
  Receipt Date: 20130926
  Transmission Date: 20140515
  Serious: Yes (Life-Threatening)
  Sender: FDA-Public Use
  Company Number: None

PATIENT
  Age: 41 Year
  Sex: Male
  Weight: 63.96 kg

DRUGS (2)
  1. ISONIAZIDE [Suspect]
     Indication: LATENT TUBERCULOSIS
     Dosage: 1 QD ORAL
     Route: 048
     Dates: start: 20130228, end: 20130611
  2. B6 [Concomitant]

REACTIONS (1)
  - Hepatic failure [None]
